FAERS Safety Report 24874325 (Version 1)
Quarter: 2025Q1

REPORT INFORMATION
  Report Type: Spontaneous
  Country: US (occurrence: US)
  Receive Date: 20250122
  Receipt Date: 20250122
  Transmission Date: 20250408
  Serious: Yes (Death, Other)
  Sender: BIOCODEX
  Company Number: US-BIOCODEX2-2025000034

PATIENT
  Age: 3 Year
  Sex: Male

DRUGS (1)
  1. STIRIPENTOL [Suspect]
     Active Substance: STIRIPENTOL
     Indication: Product used for unknown indication
     Route: 065

REACTIONS (1)
  - Sudden unexplained death in epilepsy [Fatal]
